FAERS Safety Report 22012779 (Version 1)
Quarter: 2023Q1

REPORT INFORMATION
  Report Type: Spontaneous
  Country: IT (occurrence: IT)
  Receive Date: 20230220
  Receipt Date: 20230220
  Transmission Date: 20230418
  Serious: Yes (Hospitalization)
  Sender: FDA-Public Use
  Company Number: None

PATIENT
  Age: 76 Year
  Sex: Male

DRUGS (3)
  1. LORAZEPAM [Suspect]
     Active Substance: LORAZEPAM
     Indication: Anxiety
     Dosage: 10 MG (DOSAGGIO: 10UNITA DI MISURA: MILLIGRAMMI FREQUENZA SOMMINISTRAZIONE: TOTALE VIA SOMMINISTRAZI
     Route: 048
  2. RAMIPRIL [Suspect]
     Active Substance: RAMIPRIL
     Indication: Hypertension
     Dosage: 50 MG (DOSAGGIO: 50UNITA DI MISURA: MILLIGRAMMI FREQUENZA SOMMINISTRAZIONE: TOTALE VIA SOMMINISTRAZI
     Route: 048
  3. LERCANIDIPINE [Suspect]
     Active Substance: LERCANIDIPINE
     Indication: Hypertension
     Dosage: 100 MG (DOSAGGIO: 100UNITA DI MISURA: MILLIGRAMMI FREQUENZA SOMMINISTRAZIONE: TOTALE VIA SOMMINISTRA
     Route: 048

REACTIONS (4)
  - Depressed mood [Recovering/Resolving]
  - Drug abuse [Recovering/Resolving]
  - Drug interaction [Recovering/Resolving]
  - Sopor [Recovering/Resolving]

NARRATIVE: CASE EVENT DATE: 20220724
